FAERS Safety Report 5298134-5 (Version None)
Quarter: 2007Q2

REPORT INFORMATION
  Report Type: 
  Country: None (occurrence: None)
  Receive Date: 20070416
  Receipt Date: 20070409
  Transmission Date: 20071010
  Serious: Yes (Other)
  Sender: FDA-Public Use
  Company Number: HQWYE142610APR07

PATIENT
  Sex: Female
  Weight: 62.2 kg

DRUGS (1)
  1. TYGACIL [Suspect]
     Dosage: 100 MG LOADING DOSE, THEN 50 MG EVERY 12 HR.
     Route: 042
     Dates: start: 20070407

REACTIONS (1)
  - CONVULSION [None]
